FAERS Safety Report 5128617-X (Version None)
Quarter: 2006Q4

REPORT INFORMATION
  Report Type: 
  Country: None (occurrence: None)
  Receive Date: 20061011
  Receipt Date: 20061003
  Transmission Date: 20070319
  Serious: Yes (Death)
  Sender: FDA-Public Use
  Company Number: 2006US002209

PATIENT
  Age: 47 Year
  Sex: Male

DRUGS (13)
  1. PROGRAF [Suspect]
     Indication: PROPHYLAXIS AGAINST TRANSPLANT REJECTION
     Dosage: 0.5 MG, UID/QD, ORAL
     Route: 048
     Dates: start: 20060824
  2. MYCOPHENOLATE MOFETIL [Suspect]
     Indication: PROPHYLAXIS AGAINST TRANSPLANT REJECTION
     Dosage: 250 MG, BID, ORAL
     Route: 048
     Dates: start: 20060323
  3. SIROLIMUS (SIROLIMUS) [Suspect]
     Indication: PROPHYLAXIS AGAINST TRANSPLANT REJECTION
     Dosage: 4 MG, TID
     Dates: start: 20060517
  4. DIFLUCAN [Concomitant]
  5. ROBAXIN [Concomitant]
  6. URSODIOL (URSODEOXYCHOLIC ACID) [Concomitant]
  7. AMBIEN [Concomitant]
  8. PROTONIX [Concomitant]
  9. ZYVOX [Concomitant]
  10. PREDNISONE TAB [Concomitant]
  11. BETAGAN [Concomitant]
  12. LOPRESSOR [Concomitant]
  13. LINEZOLID [Concomitant]

REACTIONS (3)
  - HEPATIC ISCHAEMIA [None]
  - PYREXIA [None]
  - TRANSPLANT REJECTION [None]
